FAERS Safety Report 4453559-2 (Version None)
Quarter: 2004Q3

REPORT INFORMATION
  Report Type: 
  Country: None (occurrence: None)
  Receive Date: 20040920
  Receipt Date: 20040909
  Transmission Date: 20050211
  Serious: Yes (Hospitalization)
  Sender: FDA-Public Use
  Company Number: CA-BRISTOL-MYERS SQUIBB COMPANY-12697058

PATIENT
  Age: 64 Year
  Sex: Male
  Weight: 78 kg

DRUGS (6)
  1. CARBOPLATIN [Suspect]
     Indication: MESOTHELIOMA
     Dates: start: 20040714, end: 20040714
  2. PEMETREXED DISODIUM [Suspect]
     Indication: MESOTHELIOMA
     Dates: start: 20040714, end: 20040714
  3. VITAMIN B-12 [Concomitant]
     Dosage: PROTOCOL REQUIREMENT
     Dates: start: 20040707
  4. FOLIC ACID [Concomitant]
     Dosage: PROTOCOL REQUIREMENT
     Dates: start: 20040707
  5. CELEBREX [Concomitant]
     Indication: CHEST DISCOMFORT
     Dates: start: 20040601
  6. TYLENOL W/ CODEINE NO. 3 [Concomitant]
     Indication: CHEST DISCOMFORT
     Dates: start: 20040601

REACTIONS (1)
  - TREMOR [None]
